FAERS Safety Report 16462402 (Version 1)
Quarter: 2019Q2

REPORT INFORMATION
  Report Type: Spontaneous
  Country: JP (occurrence: JP)
  Receive Date: 20190621
  Receipt Date: 20190621
  Transmission Date: 20190711
  Serious: Yes (Hospitalization)
  Sender: FDA-Public Use
  Company Number: JP-PFIZER INC-2019256974

PATIENT
  Age: 77 Year
  Sex: Male
  Weight: 54.2 kg

DRUGS (6)
  1. FOLIAMIN [Concomitant]
     Active Substance: FOLIC ACID
     Dosage: 5 MG, WEEKLY (ON FRIDAY)
     Dates: start: 20180621
  2. NIFEDIPINE. [Concomitant]
     Active Substance: NIFEDIPINE
     Dosage: UNK
  3. RHEUMATREX [Suspect]
     Active Substance: METHOTREXATE SODIUM
     Dosage: 6 MG, WEEKLY (WEDNESDAY)
     Route: 048
     Dates: start: 20180719, end: 20190124
  4. RHEUMATREX [Suspect]
     Active Substance: METHOTREXATE SODIUM
     Indication: RHEUMATOID ARTHRITIS
     Dosage: 4 MG, WEEKLY (ON WEDNESDAY)
     Route: 048
     Dates: start: 20180424, end: 20180718
  5. PREDONINE [Concomitant]
     Active Substance: PREDNISOLONE
     Dosage: 5 MG, DAILY
     Route: 048
     Dates: start: 20180424
  6. RIMATIL [Concomitant]
     Active Substance: BUCILLAMINE
     Dosage: 200 MG, DAILY (DIVIDED INTO 2 DOSES)
     Dates: start: 20181220

REACTIONS (2)
  - Peripheral arterial occlusive disease [Recovering/Resolving]
  - Incorrect dose administered [Unknown]

NARRATIVE: CASE EVENT DATE: 2018
